FAERS Safety Report 11468180 (Version 1)
Quarter: 2015Q3

REPORT INFORMATION
  Report Type: Spontaneous
  Country: US (occurrence: US)
  Receive Date: 20150908
  Receipt Date: 20150908
  Transmission Date: 20151125
  Serious: Yes (Other)
  Sender: FDA-Public Use
  Company Number: US-SA-2015SA134494

PATIENT
  Age: 53 Year
  Sex: Female

DRUGS (4)
  1. SOLOSTAR [Concomitant]
     Active Substance: DEVICE
     Indication: TYPE 2 DIABETES MELLITUS
  2. LANTUS SOLOSTAR [Suspect]
     Active Substance: INSULIN GLARGINE
     Indication: TYPE 2 DIABETES MELLITUS
     Dosage: 40AM/40PM ;UNITS NOT SPECIFIED?DAILY DOSE:80
     Route: 065
  3. LANTUS SOLOSTAR [Suspect]
     Active Substance: INSULIN GLARGINE
     Indication: TYPE 2 DIABETES MELLITUS
     Dosage: DOSE:102 UNIT(S)
     Route: 065
  4. TANZEUM [Suspect]
     Active Substance: ALBIGLUTIDE
     Route: 065

REACTIONS (11)
  - Blood glucose increased [Unknown]
  - Influenza [Unknown]
  - Hypersensitivity [Unknown]
  - Headache [Unknown]
  - Breast cancer [Unknown]
  - Blood glucose abnormal [Unknown]
  - Pruritus [Unknown]
  - Back pain [Unknown]
  - Palpitations [Unknown]
  - Off label use [Unknown]
  - Hyperhidrosis [Unknown]

NARRATIVE: CASE EVENT DATE: 201204
